FAERS Safety Report 19942414 (Version 1)
Quarter: 2021Q4

REPORT INFORMATION
  Report Type: Spontaneous
  Country: US (occurrence: US)
  Receive Date: 20211011
  Receipt Date: 20211011
  Transmission Date: 20220303
  Serious: Yes (Other)
  Sender: FDA-Public Use
  Company Number: None

PATIENT
  Age: 55 Year
  Sex: Female
  Weight: 67.5 kg

DRUGS (8)
  1. METHYLPHENIDATE [Suspect]
     Active Substance: METHYLPHENIDATE
     Indication: Depression
     Dosage: ?          QUANTITY:1 TABLET(S);
     Route: 048
  2. SYNTHROID [Concomitant]
     Active Substance: LEVOTHYROXINE SODIUM
  3. WELLBUTRIN [Concomitant]
     Active Substance: BUPROPION HYDROCHLORIDE
  4. FIASP [Concomitant]
     Active Substance: INSULIN ASPART
  5. LUMINANCE [Concomitant]
  6. DEVICE [Concomitant]
     Active Substance: DEVICE
  7. DEVICE [Concomitant]
     Active Substance: DEVICE
  8. TYLENOL [Concomitant]
     Active Substance: ACETAMINOPHEN

REACTIONS (4)
  - Drug ineffective [None]
  - Depression [None]
  - Suicidal ideation [None]
  - Manufacturing issue [None]

NARRATIVE: CASE EVENT DATE: 20211001
